FAERS Safety Report 16417988 (Version 1)
Quarter: 2019Q2

REPORT INFORMATION
  Report Type: Spontaneous
  Country: US (occurrence: US)
  Receive Date: 20190611
  Receipt Date: 20190611
  Transmission Date: 20190711
  Serious: Yes (Other)
  Sender: FDA-Public Use
  Company Number: US-TOLMAR, INC.-TOLG20192274

PATIENT
  Age: 63 Year
  Sex: Male

DRUGS (2)
  1. METRONIDAZOLE. [Suspect]
     Active Substance: METRONIDAZOLE
     Indication: OSTEONECROSIS OF JAW
     Dosage: 500 MG
     Route: 065
     Dates: start: 201705, end: 201711
  2. AMOXICILLIN. [Concomitant]
     Active Substance: AMOXICILLIN
     Indication: OSTEONECROSIS OF JAW
     Dosage: 500 MG
     Route: 065
     Dates: start: 201705

REACTIONS (15)
  - Dizziness [Recovered/Resolved]
  - Tandem gait test abnormal [Recovered/Resolved]
  - Sensory loss [Recovered/Resolved]
  - Coordination abnormal [Recovered/Resolved]
  - Confusional state [Recovered/Resolved]
  - Ataxia [Recovered/Resolved]
  - Facial asymmetry [Recovered/Resolved]
  - Areflexia [Recovered/Resolved]
  - Neuropathy peripheral [Unknown]
  - Condition aggravated [Unknown]
  - Mental status changes [Recovered/Resolved]
  - Drug ineffective [Unknown]
  - Toxic encephalopathy [Recovered/Resolved]
  - Disorientation [Recovered/Resolved]
  - Road traffic accident [None]

NARRATIVE: CASE EVENT DATE: 2017
